FAERS Safety Report 5709882-4 (Version None)
Quarter: 2008Q2

REPORT INFORMATION
  Report Type: 
  Country: None (occurrence: None)
  Receive Date: 20080418
  Receipt Date: 20070416
  Transmission Date: 20081010
  Serious: No
  Sender: FDA-Public Use
  Company Number: US-ASTRAZENECA-2007UW07430

PATIENT
  Age: 59 Year
  Sex: Female
  Weight: 102.1 kg

DRUGS (4)
  1. TOPROL-XL [Suspect]
     Indication: HYPERTENSION
     Route: 048
  2. TOPROL-XL [Suspect]
     Route: 048
     Dates: start: 20070201
  3. TOPROL-XL [Suspect]
     Route: 048
     Dates: start: 20070413
  4. LISINOPRIL [Concomitant]
     Route: 048

REACTIONS (3)
  - FACIAL PAIN [None]
  - HEADACHE [None]
  - SINUS HEADACHE [None]
